FAERS Safety Report 5581972-9 (Version None)
Quarter: 2008Q1

REPORT INFORMATION
  Report Type: 
  Country: None (occurrence: None)
  Receive Date: 20080104
  Receipt Date: 20071231
  Transmission Date: 20080703
  Serious: Yes (Hospitalization)
  Sender: FDA-Public Use
  Company Number: B0501462A

PATIENT
  Age: 27 Year
  Sex: Female

DRUGS (3)
  1. CLAMOXYL [Suspect]
     Indication: ANTIBIOTIC THERAPY
     Dosage: 1G THREE TIMES PER DAY
     Route: 048
     Dates: start: 20071014, end: 20071014
  2. IBUPROFEN [Suspect]
     Indication: DRUG USE FOR UNKNOWN INDICATION
     Route: 048
     Dates: start: 20071014, end: 20071014
  3. DAFALGAN [Concomitant]
     Route: 065

REACTIONS (15)
  - ANAPHYLACTIC SHOCK [None]
  - BLOOD PRESSURE DECREASED [None]
  - BRADYCARDIA [None]
  - C-REACTIVE PROTEIN INCREASED [None]
  - EXTRASYSTOLES [None]
  - HEADACHE [None]
  - HEART RATE INCREASED [None]
  - MALAISE [None]
  - OEDEMA [None]
  - PARADOXICAL DRUG REACTION [None]
  - PRURITUS [None]
  - TRYPTASE INCREASED [None]
  - URTICARIA [None]
  - VOMITING [None]
  - WHITE BLOOD CELL COUNT INCREASED [None]
